FAERS Safety Report 5746132-7 (Version None)
Quarter: 2008Q2

REPORT INFORMATION
  Report Type: 
  Country: None (occurrence: None)
  Receive Date: 20080519
  Receipt Date: 20080211
  Transmission Date: 20081010
  Serious: No
  Sender: FDA-Public Use
  Company Number: TPA2008A00154

PATIENT
  Sex: Female

DRUGS (6)
  1. ROZEREM [Suspect]
     Indication: MIDDLE INSOMNIA
     Dosage: 8 MG, HS, PER ORAL
     Route: 048
     Dates: start: 20080130
  2. MIRTAZAPINE [Concomitant]
  3. MELATONIN (MELATONIN) [Concomitant]
  4. ADVIL PM (ALL OTHER THERAPEUTIC PRODUCTS) [Concomitant]
  5. AMBIEN [Concomitant]
  6. ZYPREXA [Concomitant]

REACTIONS (1)
  - DRUG INEFFECTIVE [None]
